FAERS Safety Report 21876202 (Version 5)
Quarter: 2023Q4

REPORT INFORMATION
  Report Type: Report from Study
  Country: FR (occurrence: FR)
  Receive Date: 20230118
  Receipt Date: 20231130
  Transmission Date: 20240110
  Serious: Yes (Hospitalization)
  Sender: FDA-Public Use
  Company Number: FR-SERVIER-S23000239

PATIENT

DRUGS (14)
  1. PEGASPARGASE [Suspect]
     Active Substance: PEGASPARGASE
     Indication: Acute lymphocytic leukaemia
     Dosage: 975 IU
     Route: 042
     Dates: start: 20210705, end: 20210820
  2. PEGASPARGASE [Suspect]
     Active Substance: PEGASPARGASE
     Dosage: 1875 IU AT D43
     Route: 042
     Dates: start: 20210806, end: 20210827
  3. MERCAPTOPURINE [Suspect]
     Active Substance: MERCAPTOPURINE
     Indication: Acute lymphocytic leukaemia
     Dosage: 38 MG, QD
     Route: 048
     Dates: start: 20210608, end: 20210827
  4. MERCAPTOPURINE [Suspect]
     Active Substance: MERCAPTOPURINE
     Dosage: 46 MG, QD AT D29 TO D43
     Route: 048
     Dates: start: 20210806, end: 20210827
  5. CYTARABINE [Suspect]
     Active Substance: CYTARABINE
     Indication: Acute lymphocytic leukaemia
     Dosage: 30 MG, D28, D31
     Route: 037
     Dates: start: 20210806, end: 20210827
  6. CYTARABINE [Suspect]
     Active Substance: CYTARABINE
     Dosage: 55 MG, QD
     Route: 042
     Dates: start: 20210809, end: 20210819
  7. CYTARABINE [Suspect]
     Active Substance: CYTARABINE
     Dosage: 55 MG, QD AT D31-D34 AND D38-D41
     Route: 042
     Dates: start: 20210806, end: 20210827
  8. VINCRISTINE [Suspect]
     Active Substance: VINCRISTINE
     Indication: Acute lymphocytic leukaemia
     Dosage: 1.1 MG
     Route: 042
     Dates: start: 20210820, end: 20210820
  9. VINCRISTINE [Suspect]
     Active Substance: VINCRISTINE
     Dosage: 1.1 MG AT D43 TO D50
     Route: 042
     Dates: start: 20210806, end: 20210827
  10. CYCLOPHOSPHAMIDE [Suspect]
     Active Substance: CYCLOPHOSPHAMIDE
     Indication: Acute lymphocytic leukaemia
     Dosage: 780 MG, D29
     Route: 042
     Dates: start: 20210806, end: 20210827
  11. METHOTREXATE [Suspect]
     Active Substance: METHOTREXATE
     Indication: Acute lymphocytic leukaemia
     Dosage: 12 MG, D28, D31
     Route: 037
     Dates: start: 20210806, end: 20210827
  12. HYDROCORTISONE [Suspect]
     Active Substance: HYDROCORTISONE
     Indication: Acute lymphocytic leukaemia
     Dosage: 15 MG,  D31
     Route: 037
     Dates: start: 20210806, end: 20210827
  13. SULFAMETHOXAZOLE AND TRIMETHOPRIM [Concomitant]
     Active Substance: SULFAMETHOXAZOLE\TRIMETHOPRIM
     Indication: Product used for unknown indication
     Dosage: UNK
     Route: 065
  14. POLYETHYLENE GLYCOLS [Concomitant]
     Active Substance: POLYETHYLENE GLYCOLS
     Indication: Product used for unknown indication
     Dosage: UNK, PRN
     Route: 065

REACTIONS (8)
  - General physical health deterioration [Recovered/Resolved]
  - Bronchopulmonary aspergillosis [Recovered/Resolved]
  - Escherichia sepsis [Recovered/Resolved]
  - Enterococcal sepsis [Recovered/Resolved]
  - Mucosal inflammation [Recovered/Resolved]
  - Anal inflammation [Recovered/Resolved]
  - Anal fissure [Recovered/Resolved]
  - Aplasia [Recovered/Resolved]

NARRATIVE: CASE EVENT DATE: 20210822
